FAERS Safety Report 7074716-5 (Version None)
Quarter: 2010Q4

REPORT INFORMATION
  Report Type: 
  Country: None (occurrence: None)
  Receive Date: 20101029
  Receipt Date: 20101021
  Transmission Date: 20110411
  Serious: Yes (Hospitalization)
  Sender: FDA-Public Use
  Company Number: FR-AMGEN-FRASP2010000834

PATIENT

DRUGS (1)
  1. NPLATE [Suspect]
     Dosage: 1.5 A?G/KG, QWK

REACTIONS (1)
  - PLATELET COUNT DECREASED [None]
